FAERS Safety Report 7888327-2 (Version None)
Quarter: 2011Q4

REPORT INFORMATION
  Report Type: 
  Country: None (occurrence: None)
  Receive Date: 20111103
  Receipt Date: 20111024
  Transmission Date: 20120403
  Serious: Yes (Hospitalization, Disabling)
  Sender: FDA-Public Use
  Company Number: US-BAYER-2011-049630

PATIENT
  Age: 19 Year
  Sex: Female
  Weight: 63.946 kg

DRUGS (2)
  1. YASMIN [Suspect]
     Indication: CONTRACEPTION
     Dosage: UNK
     Dates: start: 20040423, end: 20081001
  2. DROSPIRENONE AND ETHINYL ESTRADIOL [Suspect]

REACTIONS (7)
  - ANHEDONIA [None]
  - PAIN [None]
  - INJURY [None]
  - DEFORMITY [None]
  - CHOLECYSTITIS CHRONIC [None]
  - GALLBLADDER DISORDER [None]
  - ANXIETY [None]
